FAERS Safety Report 14474376 (Version 1)
Quarter: 2018Q1

REPORT INFORMATION
  Report Type: Spontaneous
  Country: US (occurrence: US)
  Receive Date: 20180201
  Receipt Date: 20180201
  Transmission Date: 20180509
  Serious: No
  Sender: FDA-Public Use
  Company Number: US-ENDO PHARMACEUTICALS INC-2017-006035

PATIENT
  Age: 74 Year
  Sex: Female

DRUGS (2)
  1. BUPROPION HYDROCHLORIDE XL [Suspect]
     Active Substance: BUPROPION HYDROCHLORIDE
     Indication: INSOMNIA
     Dosage: 150 MG, OD
     Route: 048
     Dates: start: 20171101, end: 20171103
  2. BUPROPION HYDROCHLORIDE XL [Suspect]
     Active Substance: BUPROPION HYDROCHLORIDE
     Indication: ASTHENIA

REACTIONS (8)
  - Thinking abnormal [Recovering/Resolving]
  - Speech disorder [Unknown]
  - Gait inability [Recovering/Resolving]
  - Dysstasia [Recovering/Resolving]
  - Abnormal behaviour [Unknown]
  - Feeling abnormal [Unknown]
  - Tremor [Recovering/Resolving]
  - Off label use [Recovered/Resolved]

NARRATIVE: CASE EVENT DATE: 20171101
